FAERS Safety Report 22939296 (Version 2)
Quarter: 2023Q4

REPORT INFORMATION
  Report Type: Spontaneous
  Country: BH (occurrence: None)
  Receive Date: 20230913
  Receipt Date: 20231026
  Transmission Date: 20240110
  Serious: Yes (Hospitalization, Other)
  Sender: FDA-Public Use
  Company Number: 2023A205528

PATIENT
  Age: 56 Year
  Sex: Male

DRUGS (9)
  1. CRESTOR [Suspect]
     Active Substance: ROSUVASTATIN CALCIUM
     Dosage: 20MG TAB ONCE DAILY AT BEDTIME X 1 MONTH
     Route: 048
     Dates: start: 20230902
  2. BRILINTA [Suspect]
     Active Substance: TICAGRELOR
     Dosage: 90MG TAB TWICE DAILY X 1 MONTH
     Route: 048
     Dates: start: 20230902, end: 20230905
  3. NU SEALS [Concomitant]
     Dosage: (ASPIRIN 75 MG) TAB ONCE DAILY X 1 MONTH
  4. JARDIANCE [Concomitant]
     Active Substance: EMPAGLIFLOZIN
     Dosage: 10 MG TAB ONCE DAILY X 1 MONTH
  5. EZETIMIBE [Concomitant]
     Active Substance: EZETIMIBE
     Dosage: 10MG TAB ONCE DAILY X 1 MONTH
  6. PERINDOPRIL [Concomitant]
     Active Substance: PERINDOPRIL
     Dosage: 5MG HALF TAB AT NOON X 1 MONTH
  7. ISORDIL [Concomitant]
     Active Substance: ISOSORBIDE DINITRATE
     Dosage: 5MG S/L TAB ONE TAB WHEN NEEDED X 1 MONTH
  8. BISOPROLOL FUMARATE [Concomitant]
     Active Substance: BISOPROLOL FUMARATE
     Dosage: 5MG TAB ONCE DAILY AT MORNING X 1 MONTH
  9. PANTOVER [Concomitant]
     Dosage: 40MG TAB ONCE DAILY X 7 DAYS

REACTIONS (3)
  - Fall [Unknown]
  - Cerebral haemorrhage [Unknown]
  - Haematoma [Unknown]

NARRATIVE: CASE EVENT DATE: 20230905
